FAERS Safety Report 6741794-X (Version None)
Quarter: 2010Q2

REPORT INFORMATION
  Report Type: 
  Country: None (occurrence: None)
  Receive Date: 20100526
  Receipt Date: 20100521
  Transmission Date: 20101027
  Serious: Yes (Other)
  Sender: FDA-Public Use
  Company Number: CN-ROCHE-704540

PATIENT
  Age: 75 Year
  Sex: Male
  Weight: 49 kg

DRUGS (1)
  1. XELODA [Suspect]
     Indication: COLON CANCER
     Route: 048
     Dates: start: 20050101

REACTIONS (1)
  - METASTASES TO LUNG [None]
